FAERS Safety Report 9705836 (Version 2)
Quarter: 2013Q4

REPORT INFORMATION
  Report Type: Spontaneous
  Country: US (occurrence: US)
  Receive Date: 20131122
  Receipt Date: 20131122
  Transmission Date: 20140711
  Serious: No
  Sender: FDA-Public Use
  Company Number: US-GILEAD-2008-0017768

PATIENT
  Sex: Female
  Weight: 62.14 kg

DRUGS (16)
  1. LETAIRIS [Suspect]
     Indication: PULMONARY ARTERIAL HYPERTENSION
     Route: 048
     Dates: start: 20080621
  2. VENTAVIS [Concomitant]
     Route: 055
  3. TRACLEER [Concomitant]
     Route: 048
  4. VIAGRA [Concomitant]
     Route: 048
  5. COUMADIN [Concomitant]
     Dosage: AS DIRECTED
     Route: 048
  6. DEMADEX [Concomitant]
     Route: 048
  7. DIGOXIN [Concomitant]
     Route: 048
  8. SEROQUEL [Concomitant]
     Route: 048
  9. NEXIUM [Concomitant]
     Route: 048
  10. PROZAC [Concomitant]
     Route: 048
  11. XANAX [Concomitant]
     Route: 048
  12. GABAPENTIN [Concomitant]
     Route: 048
  13. VALTREX [Concomitant]
     Route: 048
  14. NEURONTIN [Concomitant]
     Route: 048
  15. LITHIUM CARB [Concomitant]
     Route: 048
  16. POT CHLOR [Concomitant]
     Route: 048

REACTIONS (1)
  - Fatigue [Unknown]
